FAERS Safety Report 10723323 (Version 1)
Quarter: 2015Q1

REPORT INFORMATION
  Report Type: Report from Study
  Country: CA (occurrence: CA)
  Receive Date: 20150120
  Receipt Date: 20150120
  Transmission Date: 20150721
  Serious: Yes (Death, Hospitalization, Other)
  Sender: FDA-Public Use
  Company Number: PHHY2014CA148755

PATIENT
  Age: 67 Year
  Sex: Male

DRUGS (1)
  1. SANDOSTATIN LAR DEPOT [Suspect]
     Active Substance: OCTREOTIDE ACETATE
     Indication: CARCINOID TUMOUR
     Dosage: 30 MG, QMO
     Route: 030
     Dates: start: 20141022

REACTIONS (5)
  - Malignant neoplasm progression [Unknown]
  - Diabetes mellitus [Unknown]
  - Death [Fatal]
  - Gait disturbance [Unknown]
  - Pneumonia [Unknown]

NARRATIVE: CASE EVENT DATE: 201410
